FAERS Safety Report 9135109 (Version 2)
Quarter: 2013Q2

REPORT INFORMATION
  Report Type: Spontaneous
  Country: US (occurrence: US)
  Receive Date: 20130304
  Receipt Date: 20130411
  Transmission Date: 20140414
  Serious: No
  Sender: FDA-Public Use
  Company Number: US-PFIZER INC-2013075067

PATIENT
  Age: 34 Year
  Sex: Female
  Weight: 73.92 kg

DRUGS (9)
  1. LYRICA [Suspect]
     Indication: PAIN IN EXTREMITY
     Dosage: 50 MG, 2X/DAY
     Route: 048
     Dates: start: 20130225
  2. LYRICA [Suspect]
     Indication: NERVOUS SYSTEM DISORDER
  3. CAFFEINE [Suspect]
     Indication: SOMNOLENCE
     Dosage: UNK
  4. LEXAPRO [Suspect]
     Indication: POST-TRAUMATIC STRESS DISORDER
     Dosage: UNK
     Dates: end: 2012
  5. LANTUS [Concomitant]
     Indication: DIABETES MELLITUS
     Dosage: 35 IU, DAILY AT NIGHT
  6. NOVOLOG [Concomitant]
     Indication: DIABETES MELLITUS
     Dosage: 9 IU, AFTER EACH MEAL
  7. DEPAKOTE [Concomitant]
     Indication: BIPOLAR DISORDER
     Dosage: UNK
  8. HYDROXYZINE [Concomitant]
     Indication: ANXIETY
     Dosage: UNK
  9. HYDROXYZINE [Concomitant]
     Indication: PANIC DISORDER

REACTIONS (3)
  - Somnolence [Not Recovered/Not Resolved]
  - Headache [Recovered/Resolved]
  - Drug ineffective [Unknown]
